FAERS Safety Report 7903758-X (Version None)
Quarter: 2011Q4

REPORT INFORMATION
  Report Type: 
  Country: None (occurrence: None)
  Receive Date: 20111109
  Receipt Date: 20111102
  Transmission Date: 20120403
  Serious: Yes (Life-Threatening)
  Sender: FDA-Public Use
  Company Number: PHHY2011US098232

PATIENT
  Age: 3 Month

DRUGS (3)
  1. PROPRANOLOL [Suspect]
     Indication: HAEMANGIOMA OF SKIN
     Dosage: 1 MG/KG, TID
  2. PROPRANOLOL [Suspect]
     Dosage: 0.7 MG/KG, BID
  3. PROPRANOLOL [Suspect]
     Dosage: 0.9 MG/KG, TID

REACTIONS (3)
  - CYANOSIS [None]
  - PERIPHERAL COLDNESS [None]
  - LIVEDO RETICULARIS [None]
